FAERS Safety Report 24148988 (Version 1)
Quarter: 2024Q3

REPORT INFORMATION
  Report Type: Spontaneous
  Country: US (occurrence: US)
  Receive Date: 20240729
  Receipt Date: 20240729
  Transmission Date: 20241016
  Serious: No
  Sender: SOFGEN PHARMACEUTICALS
  Company Number: US-Sofgen Pharmaceuticals, LLC-2159743

PATIENT
  Age: 44 Year
  Sex: Female
  Weight: 77.10 kg

DRUGS (1)
  1. IBUPROFEN [Suspect]
     Active Substance: IBUPROFEN
     Indication: Pain in extremity
     Route: 048
     Dates: start: 20240720, end: 20240720

REACTIONS (1)
  - Glossodynia [Recovered/Resolved]

NARRATIVE: CASE EVENT DATE: 20240720
